FAERS Safety Report 8386991-5 (Version None)
Quarter: 2012Q2

REPORT INFORMATION
  Report Type: 
  Country: None (occurrence: None)
  Receive Date: 20120522
  Receipt Date: 20120522
  Transmission Date: 20120825
  Serious: Yes (Other)
  Sender: FDA-Public Use
  Company Number: None

PATIENT
  Sex: Male
  Weight: 55.3 kg

DRUGS (1)
  1. ROCURONIUM BROMIDE [Suspect]
     Indication: ENDOTRACHEAL INTUBATION
     Dosage: IV BOLUS
     Route: 040
     Dates: start: 20120516, end: 20120516

REACTIONS (2)
  - MUSCLE RIGIDITY [None]
  - PARADOXICAL DRUG REACTION [None]
